FAERS Safety Report 10576295 (Version 2)
Quarter: 2014Q4

REPORT INFORMATION
  Report Type: Spontaneous
  Country: FR (occurrence: FR)
  Receive Date: 20141111
  Receipt Date: 20141211
  Transmission Date: 20150529
  Serious: Yes (Death, Hospitalization, Other)
  Sender: FDA-Public Use
  Company Number: FR-ALEXION PHARMACEUTICALS INC.-A201404218

PATIENT

DRUGS (3)
  1. SOLIRIS [Suspect]
     Active Substance: ECULIZUMAB
     Indication: TRANSPLANT REJECTION
     Dosage: UNK, QW
     Route: 042
     Dates: start: 201304
  2. SOLIRIS [Suspect]
     Active Substance: ECULIZUMAB
     Indication: OFF LABEL USE
  3. SOLIRIS [Suspect]
     Active Substance: ECULIZUMAB
     Indication: THROMBOTIC MICROANGIOPATHY

REACTIONS (8)
  - Inappropriate schedule of drug administration [Unknown]
  - Off label use [Unknown]
  - Aortic valve incompetence [Unknown]
  - Pericardial effusion [Unknown]
  - Pericarditis [Unknown]
  - Mediastinitis [Unknown]
  - Respiratory distress [Fatal]
  - Pneumocystis jirovecii infection [Not Recovered/Not Resolved]

NARRATIVE: CASE EVENT DATE: 2014
